FAERS Safety Report 9478490 (Version 1)
Quarter: 2013Q3

REPORT INFORMATION
  Report Type: Spontaneous
  Country: BR (occurrence: BR)
  Receive Date: 20130827
  Receipt Date: 20130827
  Transmission Date: 20140515
  Serious: Yes (Other)
  Sender: FDA-Public Use
  Company Number: BR-MYLANLABS-2013S1018228

PATIENT
  Age: 54 Year
  Sex: Female

DRUGS (5)
  1. DOXORUBICIN [Suspect]
     Indication: INVASIVE DUCTAL BREAST CARCINOMA
     Dosage: 4 CYCLES OF 60 MG/M2
     Route: 065
  2. CYCLOPHOSPHAMIDE [Suspect]
     Indication: INVASIVE DUCTAL BREAST CARCINOMA
     Dosage: 4 CYCLES OF 600 MG/M2
     Route: 065
  3. PACLITAXEL [Suspect]
     Indication: INVASIVE DUCTAL BREAST CARCINOMA
     Dosage: 4 CYCLES
     Route: 065
  4. TRASTUZUMAB [Suspect]
     Indication: INVASIVE DUCTAL BREAST CARCINOMA
     Dosage: 4 CYCLES OF 8 MG/KG AND 6 MG/KG EVERY 3W; FOLLOWED BY 6 MG/KG EVERY 3W
     Route: 065
  5. TRASTUZUMAB [Suspect]
     Indication: INVASIVE DUCTAL BREAST CARCINOMA
     Dosage: MONOTHERAPY (13 CYCLES PLANNED)
     Route: 065

REACTIONS (1)
  - Cardiotoxicity [Recovered/Resolved]
